FAERS Safety Report 25914878 (Version 2)
Quarter: 2025Q4

REPORT INFORMATION
  Report Type: Report from Study
  Country: US (occurrence: US)
  Receive Date: 20251013
  Receipt Date: 20251024
  Transmission Date: 20260118
  Serious: Yes (Hospitalization, Other)
  Sender: TG THERAPEUTICS
  Company Number: US-TG THERAPEUTICS INC.-TGT005530

PATIENT

DRUGS (3)
  1. UBLITUXIMAB [Suspect]
     Active Substance: UBLITUXIMAB
     Indication: Relapsing multiple sclerosis
     Dosage: 150 MILLIGRAM
     Route: 042
     Dates: start: 20250116, end: 20250116
  2. UBLITUXIMAB [Suspect]
     Active Substance: UBLITUXIMAB
     Dosage: 450 MILLIGRAM
     Route: 042
     Dates: start: 20250131, end: 20250131
  3. UBLITUXIMAB [Suspect]
     Active Substance: UBLITUXIMAB
     Dosage: UNK
     Route: 042
     Dates: start: 202508, end: 202508

REACTIONS (3)
  - Abortion spontaneous [Recovered/Resolved]
  - Multiple sclerosis relapse [Recovered/Resolved]
  - Maternal exposure during pregnancy [Unknown]

NARRATIVE: CASE EVENT DATE: 20250101
